FAERS Safety Report 9017432 (Version 2)
Quarter: 2013Q1

REPORT INFORMATION
  Report Type: Spontaneous
  Country: DE (occurrence: DE)
  Receive Date: 20130117
  Receipt Date: 20130219
  Transmission Date: 20140127
  Serious: Yes (Hospitalization, Other)
  Sender: FDA-Public Use
  Company Number: DE-AMGEN-DEUSP2013003314

PATIENT
  Age: 69 Year
  Sex: Male

DRUGS (4)
  1. ENBREL [Suspect]
     Indication: RHEUMATOID ARTHRITIS
     Dosage: 50 MG, 2X/WEEK
     Dates: start: 20120912, end: 20130104
  2. ENBREL [Suspect]
     Dosage: UNK
  3. NALOXONE HYDROCHLORIDE W/TILIDINE HYDROCHLO. [Concomitant]
     Dosage: UNK
  4. NOVALGIN                           /06276704/ [Concomitant]
     Dosage: UNK

REACTIONS (3)
  - Fistula [Not Recovered/Not Resolved]
  - Synovial cyst [Unknown]
  - Polyneuropathy [Unknown]
